FAERS Safety Report 19169966 (Version 1)
Quarter: 2021Q2

REPORT INFORMATION
  Report Type: Spontaneous
  Country: CN (occurrence: CN)
  Receive Date: 20210422
  Receipt Date: 20210422
  Transmission Date: 20210717
  Serious: Yes (Hospitalization, Other)
  Sender: FDA-Public Use
  Company Number: CN-PFIZER INC-2021412614

PATIENT
  Age: 47 Year
  Sex: Male
  Weight: 60 kg

DRUGS (3)
  1. CYTOSAR [Suspect]
     Active Substance: CYTARABINE
     Indication: CHEMOTHERAPY
     Dosage: 3.5 G, 1X/DAY
     Route: 041
     Dates: start: 20210322, end: 20210327
  2. CYTOSAR [Suspect]
     Active Substance: CYTARABINE
     Indication: NEOPLASM
  3. SODIUM CHLORIDE. [Concomitant]
     Active Substance: SODIUM CHLORIDE
     Indication: VEHICLE SOLUTION USE
     Dosage: 500.000 ML, 1X/DAY
     Route: 041
     Dates: start: 20210322, end: 20210327

REACTIONS (4)
  - Pyrexia [Recovering/Resolving]
  - Haemorrhage subcutaneous [Unknown]
  - Myelosuppression [Recovering/Resolving]
  - Infection [Unknown]

NARRATIVE: CASE EVENT DATE: 20210326
